FAERS Safety Report 6598139-8 (Version None)
Quarter: 2010Q1

REPORT INFORMATION
  Report Type: 
  Country: None (occurrence: None)
  Receive Date: 20100224
  Receipt Date: 20050311
  Transmission Date: 20100710
  Serious: No
  Sender: FDA-Public Use
  Company Number: US-ALLERGAN-200502065

PATIENT
  Sex: Female

DRUGS (2)
  1. BOTOX [Suspect]
     Indication: MIGRAINE
     Route: 030
     Dates: start: 19920101
  2. BOTOX [Suspect]
     Indication: TORTICOLLIS
     Dosage: GLABELLA, FOREHEAD, NECK, SHOULDERS
     Route: 030

REACTIONS (2)
  - EYELID OEDEMA [None]
  - SWELLING FACE [None]
